FAERS Safety Report 18883057 (Version 1)
Quarter: 2021Q1

REPORT INFORMATION
  Report Type: Spontaneous
  Country: US (occurrence: US)
  Receive Date: 20210211
  Receipt Date: 20210211
  Transmission Date: 20210420
  Serious: Yes (Other)
  Sender: FDA-Public Use
  Company Number: US-TEVA-2021-US-1877196

PATIENT
  Age: 13 Year
  Sex: Male

DRUGS (9)
  1. BUDESONIDE. [Suspect]
     Active Substance: BUDESONIDE
     Indication: PERIORBITAL CELLULITIS
  2. MEPOLIZUMAB [Suspect]
     Active Substance: MEPOLIZUMAB
     Dosage: AFTER THE DIAGNOSIS OF ANCA?NEGATIVE EGAP
     Route: 065
  3. PREDNISONE. [Suspect]
     Active Substance: PREDNISONE
     Indication: CHRONIC RHINOSINUSITIS WITH NASAL POLYPS
     Dosage: 2 MG/KG DAILY;
     Route: 065
  4. MEPOLIZUMAB [Suspect]
     Active Substance: MEPOLIZUMAB
     Indication: GRANULOMATOSIS WITH POLYANGIITIS
     Dosage: PRIOR TO THE DIAGNOSIS OF ANCA?NEGATIVE EGAP
     Route: 065
  5. MOMETASONE FUROATE/FORMOTEROL FUMARATE DIHYDRATE [Suspect]
     Active Substance: FORMOTEROL FUMARATE DIHYDRATE\MOMETASONE FUROATE
     Indication: CHRONIC RHINOSINUSITIS WITH NASAL POLYPS
     Dosage: DOSE: 200MCG/5MCG; 2 PUFFS TWICE DAILY
     Route: 065
  6. MONTELUKAST [Concomitant]
     Active Substance: MONTELUKAST SODIUM
     Indication: CHRONIC RHINOSINUSITIS WITH NASAL POLYPS
     Route: 065
  7. ALBUTEROL. [Concomitant]
     Active Substance: ALBUTEROL
     Indication: CHRONIC RHINOSINUSITIS WITH NASAL POLYPS
     Dosage: AS REQUIRED
     Route: 065
  8. BUDESONIDE. [Suspect]
     Active Substance: BUDESONIDE
     Indication: SINUSITIS
     Dosage: RINSES
     Route: 065
  9. BUDESONIDE/FORMOTEROL FUMARATE DIHYDRATE [Suspect]
     Active Substance: BUDESONIDE\FORMOTEROL FUMARATE DIHYDRATE
     Indication: CHRONIC RHINOSINUSITIS WITHOUT NASAL POLYPS
     Dosage: DOSE: 160MCG/4.5MCG; 2 PUFFS EVERYDAY
     Route: 065

REACTIONS (4)
  - Adrenal insufficiency [Unknown]
  - Bone density decreased [Unknown]
  - Drug ineffective [Unknown]
  - Rebound effect [Unknown]
